FAERS Safety Report 4857349-8 (Version None)
Quarter: 2005Q4

REPORT INFORMATION
  Report Type: 
  Country: None (occurrence: None)
  Receive Date: 20051219
  Receipt Date: 20050225
  Transmission Date: 20060501
  Serious: No
  Sender: FDA-Public Use
  Company Number: US-GLAXOSMITHKLINE-A0547339A

PATIENT
  Age: 31 Year
  Sex: Male

DRUGS (2)
  1. NICODERM CQ [Suspect]
  2. NICODERM CQ [Suspect]

REACTIONS (5)
  - ASTHENIA [None]
  - DIZZINESS [None]
  - NAUSEA [None]
  - NICOTINE DEPENDENCE [None]
  - VOMITING [None]
